FAERS Safety Report 23444930 (Version 3)
Quarter: 2024Q1

REPORT INFORMATION
  Report Type: Report from Study
  Country: US (occurrence: None)
  Receive Date: 20240125
  Receipt Date: 20240301
  Transmission Date: 20240409
  Serious: Yes (Life-Threatening, Hospitalization, Congenital Anomaly, Other)
  Sender: FDA-Public Use
  Company Number: 2023A282310

PATIENT
  Age: 74 Year
  Sex: Male
  Weight: 86.2 kg

DRUGS (23)
  1. CALQUENCE [Suspect]
     Active Substance: ACALABRUTINIB
     Indication: Chronic lymphocytic leukaemia
     Route: 048
     Dates: start: 20220630, end: 20231015
  2. COVID-19 VACCINE NOS [Suspect]
     Active Substance: COVID-19 VACCINE NOS
     Route: 030
     Dates: start: 20211012
  3. ACALABRUTINIB [Concomitant]
     Active Substance: ACALABRUTINIB
     Route: 048
  4. VIDAZA [Concomitant]
     Active Substance: AZACITIDINE
     Indication: Pancytopenia
  5. AZACITIDINE [Concomitant]
     Active Substance: AZACITIDINE
     Dosage: 0.9% 100 ML
  6. SODIUM CHLORIDE [Concomitant]
     Active Substance: SODIUM CHLORIDE
     Route: 042
  7. ONDANSETRON [Concomitant]
     Active Substance: ONDANSETRON
     Route: 048
  8. SODIUM CHLORIDE [Concomitant]
     Active Substance: SODIUM CHLORIDE
     Dosage: 0.9% 500 ML
     Route: 042
  9. SODIUM CHLORIDE [Concomitant]
     Active Substance: SODIUM CHLORIDE
     Dosage: 0.9% 500 ML
     Route: 042
     Dates: start: 20231226
  10. SODIUM CHLORIDE [Concomitant]
     Active Substance: SODIUM CHLORIDE
     Dosage: 0.9% 500 ML
     Route: 042
     Dates: start: 20231215
  11. VITAMIN C [Concomitant]
     Active Substance: ASCORBIC ACID
  12. VITAMIN D3 [Concomitant]
     Active Substance: CHOLECALCIFEROL
  13. ACYCLOVIR [Concomitant]
     Active Substance: ACYCLOVIR
     Route: 048
  14. ALLOPURINOL [Concomitant]
     Active Substance: ALLOPURINOL
     Route: 048
  15. DOCUSATE-SENNA [Concomitant]
     Dosage: 50 MG-8.6 MG
     Route: 048
  16. PROCHLORPERAZINE [Concomitant]
     Active Substance: PROCHLORPERAZINE
     Route: 048
  17. FLUCONAZOLE [Concomitant]
     Active Substance: FLUCONAZOLE
     Indication: Antifungal prophylaxis
     Route: 048
  18. LEVOFLOXACIN [Concomitant]
     Active Substance: LEVOFLOXACIN
     Route: 048
  19. POSACONAZOLE [Concomitant]
     Active Substance: POSACONAZOLE
     Route: 048
  20. PROCHLORPERAZINE [Concomitant]
     Active Substance: PROCHLORPERAZINE
     Route: 048
  21. TRAMADOL [Concomitant]
     Active Substance: TRAMADOL\TRAMADOL HYDROCHLORIDE
     Route: 048
  22. VENETOCLAX [Concomitant]
     Active Substance: VENETOCLAX
     Route: 048
  23. SODIUM CHLORIDE [Concomitant]
     Active Substance: SODIUM CHLORIDE
     Route: 042
     Dates: start: 20231228

REACTIONS (21)
  - Pancytopenia [Unknown]
  - Myelodysplastic syndrome [Unknown]
  - Thrombocytopenia [Unknown]
  - Squamous cell carcinoma of skin [Unknown]
  - Atrioventricular block complete [Unknown]
  - Vocal cord paralysis [Unknown]
  - White blood cell count decreased [Unknown]
  - Neutrophil count decreased [Unknown]
  - Benign prostatic hyperplasia [Unknown]
  - Bradycardia [Unknown]
  - Cellulitis [Unknown]
  - Dysphonia [Unknown]
  - Hypertension [Unknown]
  - Myelofibrosis [Unknown]
  - Orthostatic hypotension [Unknown]
  - Atrial fibrillation [Unknown]
  - Dysphagia [Unknown]
  - Pharyngeal swelling [Unknown]
  - Pleural effusion [Unknown]
  - Hypertransaminasaemia [Unknown]
  - Dry mouth [Unknown]

NARRATIVE: CASE EVENT DATE: 20230813
